FAERS Safety Report 25380985 (Version 2)
Quarter: 2025Q2

REPORT INFORMATION
  Report Type: Spontaneous
  Country: US (occurrence: US)
  Receive Date: 20250530
  Receipt Date: 20250618
  Transmission Date: 20250717
  Serious: No
  Sender: VERTEX
  Company Number: US-VERTEX PHARMACEUTICALS-2025-008375

PATIENT
  Age: 76 Year
  Sex: Female

DRUGS (2)
  1. JOURNAVX [Suspect]
     Active Substance: SUZETRIGINE
     Indication: Pain
     Dosage: LOADING DOSE 2 (50 MG) TABLETS
     Route: 048
     Dates: start: 20250515, end: 20250515
  2. JOURNAVX [Suspect]
     Active Substance: SUZETRIGINE
     Dosage: LOADING DOSE 2 (50 MG) TABLETS
     Route: 048
     Dates: start: 20250517, end: 20250517

REACTIONS (2)
  - Brain fog [Unknown]
  - Somnolence [Unknown]

NARRATIVE: CASE EVENT DATE: 20250515
